FAERS Safety Report 9211229 (Version 3)
Quarter: 2013Q4

REPORT INFORMATION
  Report Type: Spontaneous
  Country: US (occurrence: US)
  Receive Date: 20130404
  Receipt Date: 20131202
  Transmission Date: 20140711
  Serious: Yes (Other)
  Sender: FDA-Public Use
  Company Number: US-AMGEN-USASP2013014954

PATIENT
  Age: 87 Year
  Sex: Female

DRUGS (2)
  1. ENBREL [Suspect]
     Indication: RHEUMATOID ARTHRITIS
     Dosage: 50 MG, QWK
     Route: 065
     Dates: start: 20130201
  2. ENBREL [Suspect]
     Dosage: UNK
     Route: 065

REACTIONS (7)
  - Skin ulcer [Not Recovered/Not Resolved]
  - Contusion [Not Recovered/Not Resolved]
  - Skin discolouration [Not Recovered/Not Resolved]
  - Fungal infection [Recovered/Resolved]
  - Infected bites [Recovered/Resolved]
  - Skin atrophy [Not Recovered/Not Resolved]
  - Skin fragility [Not Recovered/Not Resolved]
